FAERS Safety Report 9972249 (Version 2)
Quarter: 2014Q1

REPORT INFORMATION
  Report Type: Spontaneous
  Country: DK (occurrence: DK)
  Receive Date: 20140306
  Receipt Date: 20140314
  Transmission Date: 20141002
  Serious: Yes (Death, Hospitalization)
  Sender: FDA-Public Use
  Company Number: DK-ACTELION-A-CH2014-95788

PATIENT
  Age: 43 Year
  Sex: Female

DRUGS (1)
  1. TRACLEER [Suspect]
     Indication: PULMONARY ARTERIAL HYPERTENSION
     Dosage: 125 MG, BID
     Route: 048
     Dates: end: 20140206

REACTIONS (3)
  - Pulmonary haemorrhage [Fatal]
  - Haemoptysis [Fatal]
  - Oedema [Unknown]
